FAERS Safety Report 4725869-2 (Version None)
Quarter: 2005Q3

REPORT INFORMATION
  Report Type: 
  Country: None (occurrence: None)
  Receive Date: 20050722
  Receipt Date: 20050722
  Transmission Date: 20060218
  Serious: Yes (Life-Threatening, Hospitalization)
  Sender: FDA-Public Use
  Company Number: None

PATIENT
  Age: 47 Year
  Sex: Female
  Weight: 67.1324 kg

DRUGS (2)
  1. ZYPREXA [Suspect]
     Indication: BIPOLAR DISORDER
     Dosage: 5 MG ONSET 10 MG [DOSE INCREASED ON 7-11-05]
     Dates: start: 20050707
  2. ZYPREXA [Suspect]
     Indication: BIPOLAR DISORDER
     Dosage: 5 MG ONSET 10 MG [DOSE INCREASED ON 7-11-05]
     Dates: start: 20050711

REACTIONS (5)
  - AGITATION [None]
  - ANXIETY [None]
  - HYPOMANIA [None]
  - IMPULSIVE BEHAVIOUR [None]
  - INTENTIONAL SELF-INJURY [None]
